FAERS Safety Report 10167209 (Version 1)
Quarter: 2014Q2

REPORT INFORMATION
  Report Type: Spontaneous
  Country: US (occurrence: None)
  Receive Date: 20140509
  Receipt Date: 20140509
  Transmission Date: 20141212
  Serious: Yes (Life-Threatening, Hospitalization)
  Sender: FDA-Public Use
  Company Number: None

PATIENT
  Age: 84 Year
  Sex: Male
  Weight: 62.14 kg

DRUGS (1)
  1. PREPOPIK [Suspect]
     Indication: COLONOSCOPY
     Dosage: ONE TIME, USE TWO PACKETS, ONE TIME PREP, TAKEN BY MOUTH
     Route: 048
     Dates: start: 20140422, end: 20140423

REACTIONS (3)
  - Ulcer haemorrhage [None]
  - Product solubility abnormal [None]
  - Transfusion [None]
